FAERS Safety Report 5495603-X (Version None)
Quarter: 2007Q4

REPORT INFORMATION
  Report Type: 
  Country: None (occurrence: None)
  Receive Date: 20071018
  Receipt Date: 20070330
  Transmission Date: 20080405
  Serious: Yes (Other)
  Sender: FDA-Public Use
  Company Number: 2005162350

PATIENT
  Age: 27 Year
  Sex: Male
  Weight: 72.6 kg

DRUGS (4)
  1. NEURONTIN [Suspect]
     Indication: BIPOLAR DISORDER
  2. NEURONTIN [Suspect]
     Indication: CONVULSION
  3. NEURONTIN [Suspect]
     Indication: DRUG WITHDRAWAL CONVULSIONS
  4. NEURONTIN [Suspect]
     Indication: MIGRAINE

REACTIONS (3)
  - DEPRESSION [None]
  - DRUG INEFFECTIVE [None]
  - SUICIDE ATTEMPT [None]
